FAERS Safety Report 15867885 (Version 2)
Quarter: 2019Q1

REPORT INFORMATION
  Report Type: Report from Study
  Country: AR (occurrence: AR)
  Receive Date: 20190125
  Receipt Date: 20190206
  Transmission Date: 20190417
  Serious: Yes (Hospitalization)
  Sender: FDA-Public Use
  Company Number: AR-ACTELION-A-CH2019-185338

PATIENT
  Age: 55 Year
  Sex: Male
  Weight: 103 kg

DRUGS (1)
  1. VELETRI [Suspect]
     Active Substance: EPOPROSTENOL
     Indication: PULMONARY ARTERIAL HYPERTENSION
     Dosage: 1 NG/KG, PER MIN
     Route: 042
     Dates: start: 201801

REACTIONS (4)
  - Weight increased [Recovered/Resolved]
  - Fluid retention [Recovered/Resolved]
  - Catheter removal [Unknown]
  - Catheter site infection [Recovering/Resolving]
